FAERS Safety Report 22644450 (Version 2)
Quarter: 2024Q1

REPORT INFORMATION
  Report Type: Spontaneous
  Country: JP (occurrence: JP)
  Receive Date: 20230627
  Receipt Date: 20240312
  Transmission Date: 20240409
  Serious: Yes (Death)
  Sender: FDA-Public Use
  Company Number: JP-AMGEN-JPNSP2023108795

PATIENT
  Age: 90 Year
  Sex: Male
  Weight: 43 kg

DRUGS (13)
  1. EVENITY [Suspect]
     Active Substance: ROMOSOZUMAB-AQQG
     Indication: Compression fracture
     Dosage: 210 MILLIGRAM
     Route: 058
     Dates: start: 20230608
  2. EVENITY [Suspect]
     Active Substance: ROMOSOZUMAB-AQQG
     Indication: Off label use
  3. ASPIRIN [Concomitant]
     Active Substance: ASPIRIN
     Dosage: 100 MILLIGRAM, QD
     Dates: end: 20230618
  4. CARVEDILOL [Concomitant]
     Active Substance: CARVEDILOL
     Dosage: 2.5 MILLIGRAM, QD
     Dates: end: 20230618
  5. AMBROXOL [Concomitant]
     Active Substance: AMBROXOL
     Indication: Arrhythmia
     Dosage: 15 MILLIGRAM, BID
     Dates: end: 20230618
  6. AMBROXOL [Concomitant]
     Active Substance: AMBROXOL
     Indication: Emphysema
  7. CIFENLINE [Concomitant]
     Active Substance: CIFENLINE
     Dosage: 50 MILLIGRAM, BID
     Dates: end: 20230618
  8. BICALUTAMIDE [Concomitant]
     Active Substance: BICALUTAMIDE
     Indication: Prostate cancer
     Dosage: 80 MILLIGRAM, QD
     Dates: start: 200805, end: 20230618
  9. MIROGABALIN BESYLATE [Concomitant]
     Active Substance: MIROGABALIN BESYLATE
     Indication: Back pain
     Dosage: 2.5 MILLIGRAM IN TWO DIVIDED DOSES AND 5 MILLIGRAM, BID
     Route: 048
     Dates: start: 20230522, end: 20230618
  10. TRAMCET [Concomitant]
     Active Substance: ACETAMINOPHEN\TRAMADOL
     Dosage: 1 DOSAGE FORM, QD
     Dates: end: 20230618
  11. METOCLOPRAMIDE [Concomitant]
     Active Substance: METOCLOPRAMIDE
     Dosage: 1 DOSAGE FORM, QD
  12. ACETAMINOPHEN\TRAMADOL HYDROCHLORIDE [Concomitant]
     Active Substance: ACETAMINOPHEN\TRAMADOL HYDROCHLORIDE
     Indication: Back pain
     Dosage: UNK UNK, AS NECESSARY
     Dates: start: 20230529
  13. VALACYCLOVIR HYDROCHLORIDE [Concomitant]
     Active Substance: VALACYCLOVIR HYDROCHLORIDE
     Indication: Herpes zoster
     Dosage: 50 MILLIGRAM IN THREE DIVIDED DOSES
     Dates: start: 20230605

REACTIONS (5)
  - Dehydration [Fatal]
  - Cardio-respiratory arrest [Fatal]
  - Feeding disorder [Unknown]
  - Malaise [Unknown]
  - Off label use [Unknown]

NARRATIVE: CASE EVENT DATE: 20230608
